FAERS Safety Report 9851232 (Version 2)
Quarter: 2014Q1

REPORT INFORMATION
  Report Type: Report from Study
  Country: BE (occurrence: BE)
  Receive Date: 20140128
  Receipt Date: 20140128
  Transmission Date: 20141002
  Serious: Yes (Hospitalization)
  Sender: FDA-Public Use
  Company Number: BE-EXELIXIS-XL18413002884

PATIENT
  Age: 68 Year
  Sex: Male
  Weight: 73.4 kg

DRUGS (5)
  1. XL184 [Suspect]
     Indication: PROSTATE CANCER
     Dosage: 60 MG, QD
     Route: 048
     Dates: start: 20130411, end: 20130516
  2. XL184 [Suspect]
     Dosage: 40 MG, QD
     Route: 048
     Dates: start: 20130523
  3. XL184 [Suspect]
     Indication: PROSTATE CANCER
     Dosage: 5 MG, BID
     Route: 048
     Dates: start: 20130411
  4. IMODIUM [Concomitant]
  5. LISINOPRIL [Concomitant]

REACTIONS (1)
  - Urinary tract infection [Recovered/Resolved]
